FAERS Safety Report 9392020 (Version 1)
Quarter: 2013Q3

REPORT INFORMATION
  Report Type: Spontaneous
  Country: US (occurrence: US)
  Receive Date: 20130709
  Receipt Date: 20130709
  Transmission Date: 20140515
  Serious: Yes (Other)
  Sender: FDA-Public Use
  Company Number: CHPA2013US010677

PATIENT
  Age: 79 Year
  Sex: Male

DRUGS (3)
  1. EX-LAX MAX STR LAX PILLS SENNA [Suspect]
     Indication: CONSTIPATION
     Dosage: 2 UNK, UNK
     Route: 048
  2. SYNTHROID [Concomitant]
     Dosage: UNK, UNK
  3. ANTICOAGULANTS [Concomitant]

REACTIONS (6)
  - Cerebrovascular accident [Not Recovered/Not Resolved]
  - Motor dysfunction [Not Recovered/Not Resolved]
  - Hemiplegia [Unknown]
  - Gastrooesophageal reflux disease [Not Recovered/Not Resolved]
  - Pain [Unknown]
  - Incorrect drug administration duration [Unknown]
